FAERS Safety Report 8483624-4 (Version None)
Quarter: 2012Q3

REPORT INFORMATION
  Report Type: 
  Country: None (occurrence: None)
  Receive Date: 20120702
  Receipt Date: 20120621
  Transmission Date: 20120928
  Serious: Yes (Other)
  Sender: FDA-Public Use
  Company Number: US-ELI_LILLY_AND_COMPANY-US201206007449

PATIENT
  Sex: Female

DRUGS (5)
  1. LANTUS [Concomitant]
     Indication: INSULIN-REQUIRING TYPE 2 DIABETES MELLITUS
     Dosage: 30 U, QD
     Route: 058
  2. PRADAXA [Concomitant]
     Indication: TRANSIENT ISCHAEMIC ATTACK
     Dosage: UNK
  3. BYETTA [Suspect]
     Indication: INSULIN-REQUIRING TYPE 2 DIABETES MELLITUS
     Dosage: 5 UG, QD
     Route: 058
     Dates: start: 20090101
  4. NOVOLOG [Concomitant]
     Indication: INSULIN-REQUIRING TYPE 2 DIABETES MELLITUS
     Dosage: 15 U, TID
     Route: 058
  5. METFORMIN HCL [Concomitant]
     Indication: INSULIN-REQUIRING TYPE 2 DIABETES MELLITUS
     Dosage: 1000 MG, BID
     Route: 048

REACTIONS (6)
  - BLOOD GLUCOSE DECREASED [None]
  - OFF LABEL USE [None]
  - DYSARTHRIA [None]
  - TRANSIENT ISCHAEMIC ATTACK [None]
  - BLOOD GLUCOSE INCREASED [None]
  - INAPPROPRIATE SCHEDULE OF DRUG ADMINISTRATION [None]
